FAERS Safety Report 21297758 (Version 1)
Quarter: 2022Q3

REPORT INFORMATION
  Report Type: Spontaneous
  Country: CN (occurrence: CN)
  Receive Date: 20220906
  Receipt Date: 20220906
  Transmission Date: 20221027
  Serious: Yes (Hospitalization, Other)
  Sender: FDA-Public Use
  Company Number: CN-GLAXOSMITHKLINE-CN2022APC125773

PATIENT

DRUGS (1)
  1. LAMOTRIGINE [Suspect]
     Active Substance: LAMOTRIGINE
     Indication: Epilepsy
     Dosage: 25 MG, QD
     Route: 048
     Dates: start: 20220810, end: 20220821

REACTIONS (10)
  - Drug eruption [Recovering/Resolving]
  - Penile erythema [Recovering/Resolving]
  - Scrotal erythema [Recovering/Resolving]
  - Anal erythema [Recovering/Resolving]
  - Penile swelling [Recovering/Resolving]
  - Scrotal swelling [Recovering/Resolving]
  - Anal abscess [Recovering/Resolving]
  - Secretion discharge [Recovering/Resolving]
  - Pruritus [Recovering/Resolving]
  - Scrotal exfoliation [Unknown]

NARRATIVE: CASE EVENT DATE: 20220817
